FAERS Safety Report 23077714 (Version 4)
Quarter: 2023Q4

REPORT INFORMATION
  Report Type: Spontaneous
  Country: IT (occurrence: IT)
  Receive Date: 20231018
  Receipt Date: 20231129
  Transmission Date: 20240110
  Serious: Yes (Life-Threatening, Hospitalization)
  Sender: FDA-Public Use
  Company Number: None

PATIENT
  Age: 58 Year
  Sex: Female
  Weight: 58 kg

DRUGS (9)
  1. LEVETIRACETAM [Suspect]
     Active Substance: LEVETIRACETAM
     Indication: Epilepsy
     Dosage: LEVETIRACETAM 500 MG BOLUS IV ON THE AFTERNOON OF 2 OCTOBER 2023
     Route: 042
     Dates: start: 20231002, end: 20231004
  2. LEVETIRACETAM [Suspect]
     Active Substance: LEVETIRACETAM
     Indication: Epilepsy
     Dosage: LEVETIRACETAM 500 MG ORAL IN THE EVENING OF 2 OCTOBER 2023
     Route: 048
     Dates: start: 20231002, end: 20231004
  3. TRAMADOL [Suspect]
     Active Substance: TRAMADOL\TRAMADOL HYDROCHLORIDE
     Indication: Postoperative analgesia
     Dosage: 100 MG X 3 BY INTRAVENOUS ROUTE
     Route: 042
     Dates: start: 20230929, end: 20231003
  4. CEFAZOLIN [Suspect]
     Active Substance: CEFAZOLIN
     Indication: Blood culture positive
     Dosage: CEFAZOLIN 2 G IV X 3 DAILY
     Route: 042
     Dates: start: 20231002, end: 20231003
  5. FUROSEMIDE [Suspect]
     Active Substance: FUROSEMIDE
     Indication: Cardiac failure
     Dosage: 20 MILLIGRAM, 3X/DAY (TID)
     Route: 042
     Dates: start: 20231002, end: 20231003
  6. BISACODYL [Suspect]
     Active Substance: BISACODYL
     Indication: Constipation
     Dosage: 5 MILLIGRAM, ORAL
     Route: 048
     Dates: start: 20231002, end: 20231003
  7. BISOPROLOL [Concomitant]
     Active Substance: BISOPROLOL\BISOPROLOL FUMARATE
     Indication: Product used for unknown indication
     Dosage: 1.25 MILLIGRAM, ONCE DAILY (QD)
     Dates: start: 20231002, end: 20231003
  8. BISOPROLOL [Concomitant]
     Active Substance: BISOPROLOL\BISOPROLOL FUMARATE
     Dosage: 2.5 MILLIGRAM, ONCE DAILY (QD)
     Dates: start: 20231003, end: 20231020
  9. LIDOCAINE [Concomitant]
     Active Substance: LIDOCAINE
     Indication: Product used for unknown indication
     Dosage: 60 MILLIGRAM, HOURLY

REACTIONS (2)
  - Ventricular fibrillation [Recovered/Resolved]
  - Torsade de pointes [Recovered/Resolved]

NARRATIVE: CASE EVENT DATE: 20231003
